FAERS Safety Report 7057193-X (Version None)
Quarter: 2010Q4

REPORT INFORMATION
  Report Type: 
  Country: None (occurrence: None)
  Receive Date: 20101022
  Receipt Date: 20101011
  Transmission Date: 20110411
  Serious: Yes (Life-Threatening)
  Sender: FDA-Public Use
  Company Number: FR-BAYER-201042132GPV

PATIENT
  Age: 78 Year
  Sex: Female
  Weight: 79 kg

DRUGS (1)
  1. NEXAVAR [Suspect]
     Indication: HEPATIC NEOPLASM MALIGNANT
     Dosage: UNIT DOSE: 200 MG
     Route: 048
     Dates: start: 20100505, end: 20100520

REACTIONS (1)
  - ASTHENIA [None]
